FAERS Safety Report 14326843 (Version 3)
Quarter: 2018Q1

REPORT INFORMATION
  Report Type: Spontaneous
  Country: US (occurrence: US)
  Receive Date: 20171227
  Receipt Date: 20180115
  Transmission Date: 20180509
  Serious: No
  Sender: FDA-Public Use
  Company Number: US-ELI_LILLY_AND_COMPANY-US201712011172

PATIENT
  Sex: Male

DRUGS (1)
  1. STRATTERA [Suspect]
     Active Substance: ATOMOXETINE HYDROCHLORIDE
     Indication: ATTENTION DEFICIT/HYPERACTIVITY DISORDER
     Dosage: UNK UNK, UNKNOWN
     Route: 065
     Dates: start: 2005, end: 2012

REACTIONS (8)
  - Panic attack [Unknown]
  - Decreased appetite [Unknown]
  - Derealisation [Not Recovered/Not Resolved]
  - Depression [Unknown]
  - Anxiety [Not Recovered/Not Resolved]
  - Stress [Unknown]
  - Amnesia [Not Recovered/Not Resolved]
  - Crying [Unknown]
